FAERS Safety Report 9176190 (Version 1)
Quarter: 2013Q1

REPORT INFORMATION
  Report Type: Spontaneous
  Country: IT (occurrence: IT)
  Receive Date: 20130321
  Receipt Date: 20130321
  Transmission Date: 20140127
  Serious: Yes (Other)
  Sender: FDA-Public Use
  Company Number: IT-AMGEN-ITASP2013018519

PATIENT
  Age: 80 Year
  Sex: Male

DRUGS (4)
  1. VECTIBIX [Suspect]
     Indication: COLON CANCER STAGE IV
     Dosage: 300 MG, CYCLIC
     Route: 042
     Dates: start: 20121107
  2. HYDROCORTISONE [Concomitant]
     Dosage: 250 MG, UNK
     Route: 042
  3. ZANTAC [Concomitant]
     Dosage: 1 POSOLOGIC UNIT OF 50MG/5ML
     Route: 042
  4. ATARAX                             /00058401/ [Concomitant]
     Dosage: 25 MG, UNK
     Route: 048

REACTIONS (2)
  - Pruritus [Recovered/Resolved]
  - Dermatitis acneiform [Recovered/Resolved]
